FAERS Safety Report 4779837-5 (Version None)
Quarter: 2005Q3

REPORT INFORMATION
  Report Type: 
  Country: None (occurrence: None)
  Receive Date: 20050927
  Receipt Date: 20050428
  Transmission Date: 20060218
  Serious: Yes (Death, Other)
  Sender: FDA-Public Use
  Company Number: 200511495FR

PATIENT
  Sex: 0

DRUGS (2)
  1. RILUTEK [Suspect]
  2. UNKNOWN DRUG [Concomitant]

REACTIONS (1)
  - COMPLETED SUICIDE [None]
